FAERS Safety Report 7548636-3 (Version None)
Quarter: 2011Q2

REPORT INFORMATION
  Report Type: 
  Country: None (occurrence: None)
  Receive Date: 20110615
  Receipt Date: 20110601
  Transmission Date: 20111010
  Serious: Yes (Hospitalization)
  Sender: FDA-Public Use
  Company Number: US-JNJFOC-20110602149

PATIENT
  Sex: Female
  Weight: 48.2 kg

DRUGS (11)
  1. MULTI-VITAMINS [Concomitant]
     Route: 065
  2. PROBIOTICS [Concomitant]
     Route: 065
  3. FISH OIL [Concomitant]
     Route: 065
  4. OMEPRAZOLE [Concomitant]
     Route: 065
  5. TENEX [Concomitant]
     Route: 065
  6. FLONASE [Concomitant]
     Route: 064
  7. ZYRTEC [Concomitant]
     Route: 065
  8. MESALAMINE [Concomitant]
     Route: 048
  9. CELEXA [Concomitant]
     Route: 065
  10. MERCAPTOPURINE [Concomitant]
     Route: 065
  11. REMICADE [Suspect]
     Indication: INFLAMMATORY BOWEL DISEASE
     Route: 042
     Dates: start: 20070725, end: 20080421

REACTIONS (1)
  - DEPRESSION [None]
